FAERS Safety Report 17775202 (Version 1)
Quarter: 2020Q2

REPORT INFORMATION
  Report Type: Spontaneous
  Country: US (occurrence: US)
  Receive Date: 20200513
  Receipt Date: 20200513
  Transmission Date: 20200714
  Serious: Yes (Other)
  Sender: FDA-Public Use
  Company Number: US-BAYER-2020-075751

PATIENT
  Age: 15 Month
  Sex: Female

DRUGS (2)
  1. SORAFENIB (RAF KINASE INHIBITOR) [Suspect]
     Active Substance: SORAFENIB
     Indication: INFANTILE FIBROMATOSIS
     Dosage: 400 MG, BID
  2. SORAFENIB (RAF KINASE INHIBITOR) [Suspect]
     Active Substance: SORAFENIB
     Indication: INFANTILE FIBROMATOSIS
     Dosage: 200 MG, BID

REACTIONS (10)
  - Lung disorder [Recovered/Resolved]
  - Dermatitis [None]
  - Cancer in remission [None]
  - Eczema [None]
  - Diarrhoea [None]
  - Product use in unapproved indication [None]
  - Off label use [None]
  - Product use issue [None]
  - Growth retardation [None]
  - Gastrointestinal disorder [None]
